FAERS Safety Report 4487825-1 (Version None)
Quarter: 2004Q4

REPORT INFORMATION
  Report Type: 
  Country: None (occurrence: None)
  Receive Date: 20041028
  Receipt Date: 20041019
  Transmission Date: 20050328
  Serious: Yes (Death)
  Sender: FDA-Public Use
  Company Number: PHBS2004JP13951

PATIENT
  Age: 80 Year
  Sex: Female

DRUGS (2)
  1. SANDOSTATIN LAR [Suspect]
     Indication: ACROMEGALY
     Dosage: 20 MG, ONCE/SINGLE
     Route: 030
     Dates: start: 20040824, end: 20040824
  2. SANDOSTATIN LAR [Suspect]
     Dosage: 20 MG, ONCE/SINGLE
     Route: 030
     Dates: start: 20040913, end: 20040913

REACTIONS (2)
  - DIABETES MELLITUS [None]
  - PERIPHERAL EMBOLISM [None]
